FAERS Safety Report 5166043-8 (Version None)
Quarter: 2006Q4

REPORT INFORMATION
  Report Type: 
  Country: None (occurrence: None)
  Receive Date: 20061128
  Receipt Date: 20061115
  Transmission Date: 20070319
  Serious: Yes (Other)
  Sender: FDA-Public Use
  Company Number: 2006BH014633

PATIENT
  Sex: Female

DRUGS (1)
  1. PROMETHAZINE [Suspect]
     Indication: VOMITING
     Dosage: 25 MG;ONCE;IVBOL
     Route: 040
     Dates: start: 20030501, end: 20030501

REACTIONS (12)
  - BURNING SENSATION [None]
  - CELLULITIS [None]
  - CONTUSION [None]
  - ERYTHEMA [None]
  - HYPOAESTHESIA [None]
  - INJECTION SITE NODULE [None]
  - MEDICATION ERROR [None]
  - PAIN [None]
  - PAIN IN EXTREMITY [None]
  - PHLEBITIS [None]
  - SWELLING [None]
  - TENDERNESS [None]
